FAERS Safety Report 7795848-X (Version None)
Quarter: 2011Q4

REPORT INFORMATION
  Report Type: 
  Country: None (occurrence: None)
  Receive Date: 20111004
  Receipt Date: 20110927
  Transmission Date: 20120403
  Serious: Yes (Life-Threatening, Other)
  Sender: FDA-Public Use
  Company Number: PHHY2011US60510

PATIENT
  Sex: Female
  Weight: 194 kg

DRUGS (29)
  1. SINGULAIR [Concomitant]
  2. FLEXEN [Concomitant]
  3. CELEXA [Concomitant]
  4. AMLODIPINE BESYLATE [Suspect]
  5. METOPROLOL TARTRATE [Concomitant]
  6. PRAVASTATIN [Concomitant]
  7. SODIUM CHLORIDE [Concomitant]
     Dosage: 20 MG, QD (ONCE AT THE BEDTIME)
  8. POTASSIUM [Concomitant]
     Dosage: 2 DF, Q72H
  9. ASPIRIN [Concomitant]
     Dosage: 81 MG, BID
  10. PANTOPRAZOLE SOD DR [Concomitant]
     Dosage: 40 MG, ONE AT BEDTIME
  11. ZANTAC [Concomitant]
  12. MICARDIS [Concomitant]
  13. RANITIDINE [Concomitant]
     Dosage: 300 MG, UNK
  14. ANTIARRHYTHMICS [Concomitant]
  15. CLONIDINE HYDROCHLORIDE [Concomitant]
     Dosage: 0.2 MG, TID
  16. LASIX [Concomitant]
  17. LISINOPRIL [Suspect]
  18. INSULIN [Concomitant]
  19. OXYCODONE HCL AND ACETAMINOPHEN [Concomitant]
  20. ALPRAZOLAM [Concomitant]
     Dosage: 2 MG, ONE TO THREE TIMES DAILY AS NEEDED
  21. LANTUS [Concomitant]
  22. NOVOLOG [Concomitant]
  23. XANAX [Concomitant]
  24. DICLOFENAC [Concomitant]
  25. HYDRALAZINE HCL [Concomitant]
  26. TEKTURNA [Suspect]
     Indication: HYPERTENSION
     Dosage: 300 MG, QD
     Dates: start: 20070101
  27. FLUROSEMIDE [Concomitant]
     Dosage: 2 DF, EVRY 3 DAYS AS NEEDED
  28. PROTONIX [Concomitant]
  29. ANTIHYPERTENSIVE DRUGS [Concomitant]

REACTIONS (9)
  - SUPRAVENTRICULAR TACHYCARDIA [None]
  - OEDEMA PERIPHERAL [None]
  - PALPITATIONS [None]
  - CARDIAC DISORDER [None]
  - DRUG INEFFECTIVE [None]
  - FATIGUE [None]
  - HEART RATE INCREASED [None]
  - CHEST PAIN [None]
  - BLOOD PRESSURE INCREASED [None]
